FAERS Safety Report 17956003 (Version 4)
Quarter: 2020Q3

REPORT INFORMATION
  Report Type: Spontaneous
  Country: US (occurrence: US)
  Receive Date: 20200629
  Receipt Date: 20200923
  Transmission Date: 20201103
  Serious: No
  Sender: FDA-Public Use
  Company Number: US-PFIZER INC-2020247373

PATIENT
  Age: 85 Year
  Sex: Female

DRUGS (1)
  1. PREMPRO [Suspect]
     Active Substance: ESTROGENS, CONJUGATED\MEDROXYPROGESTERONE ACETATE
     Dosage: UNK

REACTIONS (5)
  - Constipation [Unknown]
  - Irritable bowel syndrome [Unknown]
  - Ulcer [Unknown]
  - Memory impairment [Unknown]
  - Dyslexia [Unknown]
